FAERS Safety Report 5857265-9 (Version None)
Quarter: 2008Q3

REPORT INFORMATION
  Report Type: 
  Country: None (occurrence: None)
  Receive Date: 20080822
  Receipt Date: 20080812
  Transmission Date: 20090109
  Serious: Yes (Hospitalization)
  Sender: FDA-Public Use
  Company Number: 237608J08USA

PATIENT
  Age: 61 Year
  Sex: Female

DRUGS (1)
  1. REBIF [Suspect]
     Indication: MULTIPLE SCLEROSIS
     Dosage: 44 MCG, 3 IN 1 WEEKS, SUBCUTANEOUS
     Route: 058
     Dates: start: 20031114

REACTIONS (6)
  - BALANCE DISORDER [None]
  - GAIT DISTURBANCE [None]
  - MEMORY IMPAIRMENT [None]
  - SPEECH DISORDER [None]
  - UPPER RESPIRATORY TRACT INFECTION [None]
  - VISUAL IMPAIRMENT [None]
